FAERS Safety Report 12574398 (Version 1)
Quarter: 2016Q3

REPORT INFORMATION
  Report Type: Spontaneous
  Country: US (occurrence: US)
  Receive Date: 20160720
  Receipt Date: 20160720
  Transmission Date: 20161109
  Serious: No
  Sender: FDA-Public Use
  Company Number: US-AMNEAL PHARMACEUTICALS-2016AMN00269

PATIENT
  Age: 38 Year
  Sex: Female

DRUGS (2)
  1. RISPERIDONE. [Suspect]
     Active Substance: RISPERIDONE
     Dosage: 2.5 ML, 1X/DAY
     Route: 048
     Dates: start: 20150522
  2. RISPERIDONE. [Suspect]
     Active Substance: RISPERIDONE
     Dosage: 1 ML, 1X/DAY
     Route: 048
     Dates: start: 20150522

REACTIONS (3)
  - Aggression [None]
  - Attention-seeking behaviour [None]
  - Crying [None]

NARRATIVE: CASE EVENT DATE: 20150615
